FAERS Safety Report 8072717-1 (Version None)
Quarter: 2012Q1

REPORT INFORMATION
  Report Type: 
  Country: None (occurrence: None)
  Receive Date: 20120126
  Receipt Date: 20120118
  Transmission Date: 20120608
  Serious: No
  Sender: FDA-Public Use
  Company Number: US-PFIZER INC-2012012828

PATIENT
  Sex: Female
  Weight: 88.435 kg

DRUGS (9)
  1. FLUCONAZOLE [Suspect]
     Indication: VULVOVAGINAL PRURITUS
  2. PREMARIN [Suspect]
     Indication: VULVOVAGINAL BURNING SENSATION
     Dosage: 0.625 MG THREE TIMES A WEEK
     Route: 067
     Dates: start: 20120109
  3. NYSTATIN + TRIAMCINOLONE ACETONIDE [Suspect]
     Indication: VULVOVAGINAL BURNING SENSATION
     Dosage: UNK, 2X/DAY
     Dates: start: 20111112, end: 20111101
  4. CIPROFLOXACIN [Suspect]
     Dosage: UNK, 2X/DAY
     Dates: start: 20111101, end: 20111101
  5. CIPROFLOXACIN [Suspect]
     Indication: URINARY TRACT INFECTION
     Dosage: 250 MG, 2X/DAY
     Dates: start: 20111101, end: 20111101
  6. NYSTATIN + TRIAMCINOLONE ACETONIDE [Suspect]
     Indication: VULVOVAGINAL PRURITUS
  7. PREMARIN [Suspect]
     Indication: VULVOVAGINAL PRURITUS
  8. FLUCONAZOLE [Suspect]
     Indication: VULVOVAGINAL BURNING SENSATION
     Dosage: 100 MG, 1X/DAY
     Route: 048
  9. CIPROFLOXACIN [Suspect]
     Dosage: 500 MG, 2X/DAY
     Dates: start: 20111101, end: 20111101

REACTIONS (2)
  - VAGINAL DISORDER [None]
  - DRUG INEFFECTIVE [None]
